FAERS Safety Report 20726979 (Version 5)
Quarter: 2022Q4

REPORT INFORMATION
  Report Type: Spontaneous
  Country: US (occurrence: US)
  Receive Date: 20220419
  Receipt Date: 20221024
  Transmission Date: 20230112
  Serious: No
  Sender: FDA-Public Use
  Company Number: US-PFIZER INC-202101803300

PATIENT
  Age: 68 Year
  Sex: Female

DRUGS (2)
  1. IBRANCE [Suspect]
     Active Substance: PALBOCICLIB
     Dosage: 125 MG
     Dates: start: 20211024
  2. IBRANCE [Suspect]
     Active Substance: PALBOCICLIB
     Dosage: 125 MG
     Dates: start: 20220406

REACTIONS (8)
  - Product dose omission issue [Unknown]
  - Muscle spasms [Unknown]
  - Hypoaesthesia [Unknown]
  - Condition aggravated [Unknown]
  - Fatigue [Unknown]
  - Weight increased [Unknown]
  - Hyperphagia [Unknown]
  - Gait inability [Unknown]
